FAERS Safety Report 19254919 (Version 1)
Quarter: 2021Q2

REPORT INFORMATION
  Report Type: Spontaneous
  Country: CA (occurrence: CA)
  Receive Date: 20210513
  Receipt Date: 20210513
  Transmission Date: 20210717
  Serious: Yes (Death, Hospitalization, Other)
  Sender: FDA-Public Use
  Company Number: CA-AUROBINDO-AUR-APL-2021-018962

PATIENT
  Age: 24 Year
  Sex: Female

DRUGS (3)
  1. PARACETAMOL [Suspect]
     Active Substance: ACETAMINOPHEN
     Indication: PRODUCT USED FOR UNKNOWN INDICATION
     Dosage: 50 GRAM
     Route: 048
  2. GABAPENTIN. [Suspect]
     Active Substance: GABAPENTIN
     Indication: PRODUCT USED FOR UNKNOWN INDICATION
     Dosage: 25.5 GRAM
     Route: 048
  3. MORPHINE [Suspect]
     Active Substance: MORPHINE
     Indication: PRODUCT USED FOR UNKNOWN INDICATION
     Dosage: 60 MILLIGRAM
     Route: 048

REACTIONS (13)
  - Depressed level of consciousness [Unknown]
  - Cerebral haemorrhage [Unknown]
  - Hepatic failure [Fatal]
  - Coagulopathy [Fatal]
  - Brain oedema [Fatal]
  - Metabolic acidosis [Unknown]
  - Mental status changes [Unknown]
  - Encephalopathy [Unknown]
  - Ileus [Unknown]
  - Hypoglycaemia [Unknown]
  - Overdose [Unknown]
  - Lactic acidosis [Unknown]
  - Diffuse axonal injury [Unknown]
